FAERS Safety Report 4456292-6 (Version None)
Quarter: 2004Q3

REPORT INFORMATION
  Report Type: 
  Country: None (occurrence: None)
  Receive Date: 20040917
  Receipt Date: 20040830
  Transmission Date: 20050211
  Serious: Yes (Other)
  Sender: FDA-Public Use
  Company Number: USA040876872

PATIENT
  Age: 70 Year
  Sex: Male
  Weight: 91 kg

DRUGS (1)
  1. HUMULIN 70/30 [Suspect]
     Dosage: 80 MG DAY

REACTIONS (1)
  - BLINDNESS UNILATERAL [None]
